FAERS Safety Report 4711976-7 (Version None)
Quarter: 2005Q2

REPORT INFORMATION
  Report Type: 
  Country: None (occurrence: None)
  Receive Date: 20050629
  Receipt Date: 20050425
  Transmission Date: 20051028
  Serious: No
  Sender: FDA-Public Use
  Company Number: 05P-163-0298355-00

PATIENT
  Age: 60 Year
  Sex: Female
  Weight: 96 kg

DRUGS (7)
  1. HUMIRA [Suspect]
     Indication: RHEUMATOID ARTHRITIS
     Dosage: 40 MG, 1 IN 1 WK
     Dates: start: 20040801, end: 20050301
  2. HYDROXYCHLOROQUINE PHOSPHATE [Concomitant]
  3. MEDFORMIN [Concomitant]
  4. METHYLPREDNISONE [Concomitant]
  5. OMEPRAZOLE [Concomitant]
  6. ADVAIR DISKUS 100/50 [Concomitant]
  7. LEFLUNOMIDE [Concomitant]

REACTIONS (1)
  - FUNGAL INFECTION [None]
